FAERS Safety Report 12426471 (Version 2)
Quarter: 2016Q3

REPORT INFORMATION
  Report Type: Spontaneous
  Country: US (occurrence: US)
  Receive Date: 20160601
  Receipt Date: 20160708
  Transmission Date: 20161109
  Serious: No
  Sender: FDA-Public Use
  Company Number: PHEH2016US013484

PATIENT
  Sex: Female
  Weight: 178 kg

DRUGS (1)
  1. EXELON PATCH [Suspect]
     Active Substance: RIVASTIGMINE
     Indication: AMNESIA
     Dosage: 4.6 MG, QD
     Route: 062

REACTIONS (3)
  - Asthenia [Unknown]
  - Diarrhoea [Recovered/Resolved]
  - Lethargy [Unknown]
